FAERS Safety Report 19894169 (Version 3)
Quarter: 2021Q4

REPORT INFORMATION
  Report Type: Report from Study
  Country: MX (occurrence: MX)
  Receive Date: 20210928
  Receipt Date: 20211115
  Transmission Date: 20220303
  Serious: Yes (Disabling, Other)
  Sender: FDA-Public Use
  Company Number: NVSC2021MX219623

PATIENT
  Age: 39 Year
  Sex: Male
  Weight: 63 kg

DRUGS (3)
  1. GILENYA [Suspect]
     Active Substance: FINGOLIMOD HYDROCHLORIDE
     Indication: Multiple sclerosis
     Dosage: 0.5 MG, QD
     Route: 048
     Dates: start: 20210115
  2. GABAPENTIN [Concomitant]
     Active Substance: GABAPENTIN
     Indication: Limb discomfort
     Dosage: 1 DF, Q12H
     Route: 048
     Dates: start: 2019
  3. CELECOXIB [Concomitant]
     Active Substance: CELECOXIB
     Indication: Limb discomfort
     Dosage: 1 DF, Q12H (AT NIGHT)
     Route: 048
     Dates: start: 2019

REACTIONS (12)
  - Movement disorder [Recovered/Resolved]
  - Pain in extremity [Recovered/Resolved]
  - Haemorrhage [Unknown]
  - Loss of consciousness [Unknown]
  - Pain [Recovered/Resolved]
  - Tremor [Unknown]
  - Hypoaesthesia [Recovering/Resolving]
  - Fall [Recovering/Resolving]
  - Limb injury [Unknown]
  - Head injury [Recovering/Resolving]
  - Amnesia [Unknown]
  - Asthenia [Unknown]

NARRATIVE: CASE EVENT DATE: 20210904
